FAERS Safety Report 6343635-1 (Version None)
Quarter: 2009Q3

REPORT INFORMATION
  Report Type: 
  Country: None (occurrence: None)
  Receive Date: 20090904
  Receipt Date: 20090904
  Transmission Date: 20100115
  Serious: Yes (Life-Threatening, Hospitalization, Disabling)
  Sender: FDA-Public Use
  Company Number: None

PATIENT
  Age: 35 Year
  Sex: Female
  Weight: 107.5025 kg

DRUGS (2)
  1. YAZ [Suspect]
     Indication: CONTRACEPTION
     Dosage: 1 PILL .02MG ESTROGEN 3MG PROGESTERN DAILY ORAL
     Route: 048
     Dates: start: 20080101, end: 20090601
  2. YAZ [Suspect]
     Indication: PREMENSTRUAL SYNDROME
     Dosage: 1 PILL .02MG ESTROGEN 3MG PROGESTERN DAILY ORAL
     Route: 048
     Dates: start: 20080101, end: 20090601

REACTIONS (9)
  - GAIT DEVIATION [None]
  - HEADACHE [None]
  - HYPOAESTHESIA [None]
  - HYPOAESTHESIA ORAL [None]
  - INTRACRANIAL VENOUS SINUS THROMBOSIS [None]
  - OEDEMA PERIPHERAL [None]
  - PAIN IN EXTREMITY [None]
  - SPEECH DISORDER [None]
  - VISION BLURRED [None]
